FAERS Safety Report 5195127-3 (Version None)
Quarter: 2006Q4

REPORT INFORMATION
  Report Type: 
  Country: None (occurrence: None)
  Receive Date: 20061229
  Receipt Date: 20051005
  Transmission Date: 20070319
  Serious: Yes (Hospitalization, Other)
  Sender: FDA-Public Use
  Company Number: GB-PFIZER INC-2005139245

PATIENT
  Sex: Female
  Weight: 48 kg

DRUGS (39)
  1. SINEQUAN [Suspect]
     Indication: DEPRESSION
     Dosage: TEXT:UNKNOWN-FREQ:UNKNOWN
     Route: 048
     Dates: start: 20020815, end: 20050113
  2. SINEQUAN [Suspect]
     Indication: ANXIETY
  3. SINEQUAN [Suspect]
     Indication: ANAPHYLACTIC REACTION
  4. VENLAFAXINE HCL [Concomitant]
     Route: 048
  5. CLIMAGEST [Concomitant]
     Route: 048
  6. LANSOPRAZOLE [Concomitant]
     Route: 048
  7. DOTHIEPIN HYDROCHLORIDE [Concomitant]
     Route: 065
  8. DIAZEPAM [Concomitant]
     Route: 065
  9. DESLORATADINE [Concomitant]
     Route: 065
  10. BETNESOL [Concomitant]
     Route: 065
  11. IBUPROFEN [Concomitant]
     Route: 065
  12. PROZAC [Concomitant]
     Route: 065
  13. MAXOLON [Concomitant]
     Route: 065
  14. AMOXICILLIN [Concomitant]
     Route: 065
  15. TRANSVASIN [Concomitant]
     Route: 065
  16. OTOMIZE [Concomitant]
     Route: 065
  17. LANSOPRAZOLE [Concomitant]
     Route: 065
  18. CETIRIZINE HCL [Concomitant]
     Route: 065
  19. NEOCLARITYN [Concomitant]
     Route: 065
  20. ACETAMINOPHEN W/ CODEINE [Concomitant]
     Route: 065
  21. MONTELUKAST SODIUM [Concomitant]
     Route: 065
  22. CHLORPHENIRAMINE MALEATE [Concomitant]
     Route: 065
  23. DIPHENHYDRAMINE HYDROCHLORIDE [Concomitant]
     Route: 065
  24. ZOPICLONE [Concomitant]
     Route: 065
  25. ESOMEPRAZOLE MAGNESIUM [Concomitant]
     Route: 065
  26. GAVISCON [Concomitant]
     Route: 065
  27. ZANTAC [Concomitant]
     Route: 065
  28. PEPTAC [Concomitant]
     Route: 065
  29. TEMAZEPAM [Concomitant]
     Route: 065
  30. METOCLOPRAMIDE HYDROCHLORIDE [Concomitant]
     Route: 065
  31. OMEPRAZOLE [Concomitant]
     Route: 065
  32. ZOLPIDEM TARTRATE [Concomitant]
     Route: 065
  33. NYSTATIN [Concomitant]
     Route: 048
  34. CYCLIZINE [Concomitant]
     Route: 065
  35. ALL OTHER THERAPEUTIC PRODUCTS [Concomitant]
     Route: 048
  36. SERTRALINE HYDROCHLORIDE [Concomitant]
     Route: 065
  37. PREDNISOLONE [Concomitant]
     Route: 065
  38. PROCHLORPERAZINE MALEATE [Concomitant]
     Route: 065
  39. ALL OTHER THERAPEUTIC PRODUCTS [Concomitant]

REACTIONS (25)
  - ABDOMINAL DISCOMFORT [None]
  - ABDOMINAL PAIN UPPER [None]
  - DEHYDRATION [None]
  - DIARRHOEA [None]
  - DRUG CLEARANCE DECREASED [None]
  - DRUG HYPERSENSITIVITY [None]
  - DRY MOUTH [None]
  - DYSGEUSIA [None]
  - DYSPHAGIA [None]
  - DYSPNOEA [None]
  - FACIAL PAIN [None]
  - GASTRIC ULCER [None]
  - GASTRITIS [None]
  - GASTROINTESTINAL DISORDER [None]
  - HEADACHE [None]
  - LARYNGOSPASM [None]
  - MICTURITION URGENCY [None]
  - NIGHT SWEATS [None]
  - PRODUCTIVE COUGH [None]
  - RHINALGIA [None]
  - SLEEP DISORDER [None]
  - TONGUE BLACK HAIRY [None]
  - TREMOR [None]
  - WEIGHT DECREASED [None]
  - WEIGHT INCREASED [None]
